FAERS Safety Report 17065399 (Version 1)
Quarter: 2019Q4

REPORT INFORMATION
  Report Type: Spontaneous
  Country: UG (occurrence: UG)
  Receive Date: 20191122
  Receipt Date: 20191122
  Transmission Date: 20200122
  Serious: Yes (Hospitalization, Other)
  Sender: FDA-Public Use
  Company Number: UG-VIIV HEALTHCARE LIMITED-UG2019EME206446

PATIENT

DRUGS (1)
  1. DOLUTEGRAVIR [Suspect]
     Active Substance: DOLUTEGRAVIR
     Indication: PRODUCT USED FOR UNKNOWN INDICATION
     Dosage: 1 DF, QD
     Dates: start: 20190627, end: 20191003

REACTIONS (8)
  - Hyperglycaemia [Unknown]
  - Polyuria [Unknown]
  - Libido decreased [Unknown]
  - Diabetes mellitus [Unknown]
  - Polydipsia [Unknown]
  - Thirst [Unknown]
  - Dry mouth [Unknown]
  - Asthenia [Unknown]

NARRATIVE: CASE EVENT DATE: 20190902
